FAERS Safety Report 8107617-1 (Version None)
Quarter: 2012Q1

REPORT INFORMATION
  Report Type: 
  Country: None (occurrence: None)
  Receive Date: 20120202
  Receipt Date: 20120130
  Transmission Date: 20120608
  Serious: No
  Sender: FDA-Public Use
  Company Number: US-PFIZER INC-2012025177

PATIENT
  Sex: Female
  Weight: 49.887 kg

DRUGS (2)
  1. ADVIL PM [Suspect]
     Indication: SLEEP DISORDER
  2. ADVIL PM [Suspect]
     Indication: PAIN
     Dosage: 400/76MG (2 OF IBUPROFEN 200 MG/DIPHENHYDRAMINE CITRATE 38 MG), 1X/DAY
     Route: 048
     Dates: start: 20120127, end: 20120129

REACTIONS (1)
  - DRUG INEFFECTIVE [None]
